FAERS Safety Report 13647158 (Version 1)
Quarter: 2017Q2

REPORT INFORMATION
  Report Type: Spontaneous
  Country: US (occurrence: US)
  Receive Date: 20170613
  Receipt Date: 20170613
  Transmission Date: 20170830
  Serious: Yes (Other)
  Sender: FDA-Public Use
  Company Number: None

PATIENT
  Age: 71 Year
  Sex: Male
  Weight: 78.3 kg

DRUGS (10)
  1. DOXAZOSIN [Concomitant]
     Active Substance: DOXAZOSIN\DOXAZOSIN MESYLATE
  2. METAMUCIL [Concomitant]
     Active Substance: PLANTAGO SEED
  3. PIPERACILLIN AND TAZOBACTAM [Suspect]
     Active Substance: PIPERACILLIN SODIUM\TAZOBACTAM SODIUM
     Indication: SEPSIS
     Route: 042
     Dates: start: 20170607, end: 20170612
  4. CARVEDILOL. [Concomitant]
     Active Substance: CARVEDILOL
  5. ASPIRIN. [Concomitant]
     Active Substance: ASPIRIN
  6. FERROUS SULFATE. [Concomitant]
     Active Substance: FERROUS SULFATE
  7. DOCUSATE [Concomitant]
     Active Substance: DOCUSATE
  8. ATORVASTATIN [Concomitant]
     Active Substance: ATORVASTATIN
  9. VITAMIN C [Concomitant]
     Active Substance: ASCORBIC ACID
  10. SENNA [Concomitant]
     Active Substance: SENNA LEAF\SENNOSIDES\SENNOSIDES A AND B

REACTIONS (3)
  - Varicose vein [None]
  - Urinary bladder haemorrhage [None]
  - Haematuria [None]

NARRATIVE: CASE EVENT DATE: 20170607
